FAERS Safety Report 17739461 (Version 1)
Quarter: 2020Q2

REPORT INFORMATION
  Report Type: Report from Study
  Country: IT (occurrence: IT)
  Receive Date: 20200504
  Receipt Date: 20200504
  Transmission Date: 20200714
  Serious: Yes (Other)
  Sender: FDA-Public Use
  Company Number: IT-TEVA-2020-IT-1229815

PATIENT
  Age: 72 Year
  Sex: Male
  Weight: 59 kg

DRUGS (2)
  1. ETOPOSIDE TEVA [Suspect]
     Active Substance: ETOPOSIDE
     Indication: LUNG NEOPLASM MALIGNANT
     Dosage: 120 MG
     Route: 042
     Dates: start: 20200415, end: 20200415
  2. CARBOPLATIN. [Concomitant]
     Active Substance: CARBOPLATIN
     Dosage: 285 MG
     Route: 042
     Dates: start: 20200415, end: 20200415

REACTIONS (3)
  - Dyspnoea [Recovered/Resolved]
  - Hypersensitivity [Recovered/Resolved]
  - Bradycardia [Recovered/Resolved]

NARRATIVE: CASE EVENT DATE: 20200415
